FAERS Safety Report 6462530-0 (Version None)
Quarter: 2009Q4

REPORT INFORMATION
  Report Type: 
  Country: None (occurrence: None)
  Receive Date: 20091130
  Receipt Date: 20090925
  Transmission Date: 20100525
  Serious: Yes (Death, Life-Threatening, Hospitalization)
  Sender: FDA-Public Use
  Company Number: US-SANOFI-AVENTIS-D01200904673

PATIENT
  Age: 1 Month
  Sex: Male
  Weight: 4 kg

DRUGS (4)
  1. CLOPIDOGREL [Suspect]
     Dosage: DOSE TEXT: 0.2 MG/KG/DAY
     Route: 048
     Dates: start: 20090709, end: 20090917
  2. ASPIRIN [Suspect]
  3. ZANTAC [Concomitant]
  4. REGLAN [Concomitant]

REACTIONS (2)
  - PUNCTURE SITE HAEMORRHAGE [None]
  - TRICUSPID VALVE INCOMPETENCE [None]
